FAERS Safety Report 19499879 (Version 1)
Quarter: 2021Q3

REPORT INFORMATION
  Report Type: Spontaneous
  Country: FR (occurrence: FR)
  Receive Date: 20210706
  Receipt Date: 20210706
  Transmission Date: 20211014
  Serious: Yes (Disabling, Other)
  Sender: FDA-Public Use
  Company Number: NVSC2021FR146647

PATIENT
  Age: 48 Year
  Sex: Male

DRUGS (4)
  1. METHOTREXATE. [Suspect]
     Active Substance: METHOTREXATE
     Indication: PRODUCT USED FOR UNKNOWN INDICATION
     Dosage: UNK
     Route: 065
  2. NIVAQUINE [Suspect]
     Active Substance: CHLOROQUINE
     Indication: SYSTEMIC LUPUS ERYTHEMATOSUS
     Dosage: 2 DF, QD
     Route: 048
     Dates: start: 201707, end: 20200211
  3. TRANDATE [Suspect]
     Active Substance: LABETALOL HYDROCHLORIDE
     Indication: PRODUCT USED FOR UNKNOWN INDICATION
     Dosage: UNK
     Route: 065
  4. INEXIUM [Concomitant]
     Active Substance: ESOMEPRAZOLE
     Indication: PRODUCT USED FOR UNKNOWN INDICATION
     Dosage: UNK
     Route: 065

REACTIONS (14)
  - Overlap syndrome [Unknown]
  - Vision blurred [Unknown]
  - Arthralgia [Unknown]
  - Alopecia [Unknown]
  - Retinal injury [Unknown]
  - Anxiety [Unknown]
  - Condition aggravated [Unknown]
  - Visual impairment [Unknown]
  - Retinopathy [Unknown]
  - Rash [Unknown]
  - Episcleritis [Unknown]
  - Maculopathy [Unknown]
  - Eye naevus [Unknown]
  - Melanocytic naevus [Unknown]
